FAERS Safety Report 4662153-X (Version None)
Quarter: 2005Q2

REPORT INFORMATION
  Report Type: 
  Country: None (occurrence: None)
  Receive Date: 20050516
  Receipt Date: 20050503
  Transmission Date: 20051028
  Serious: Yes (Hospitalization, Other)
  Sender: FDA-Public Use
  Company Number: PHBS2005BR06271

PATIENT
  Sex: Male

DRUGS (2)
  1. CONOTRIL [Concomitant]
     Indication: SLEEP DISORDER
     Route: 048
  2. VOLTAREN [Suspect]
     Indication: BACK PAIN
     Dosage: 75 MG/DAY

REACTIONS (7)
  - COMA [None]
  - COUGH [None]
  - DRUG HYPERSENSITIVITY [None]
  - LARYNGEAL OEDEMA [None]
  - NASOPHARYNGITIS [None]
  - PRURITUS [None]
  - SYNCOPE [None]
